FAERS Safety Report 12310753 (Version 4)
Quarter: 2016Q3

REPORT INFORMATION
  Report Type: Report from Study
  Country: BR (occurrence: BR)
  Receive Date: 20160427
  Receipt Date: 20160811
  Transmission Date: 20161109
  Serious: Yes (Hospitalization, Other)
  Sender: FDA-Public Use
  Company Number: BR-BIOGEN-2016BI00225716

PATIENT
  Age: 52 Year
  Sex: Female

DRUGS (2)
  1. TYSABRI [Suspect]
     Active Substance: NATALIZUMAB
     Indication: MULTIPLE SCLEROSIS
     Dosage: INFUSED OVER 1 HOUR
     Route: 065
     Dates: start: 201308, end: 201603
  2. METFORMIN [Concomitant]
     Active Substance: METFORMIN HYDROCHLORIDE
     Indication: DIABETES MELLITUS
     Route: 065

REACTIONS (12)
  - Multiple sclerosis relapse [Unknown]
  - Gastritis [Unknown]
  - Drug abuse [Unknown]
  - Cognitive disorder [Unknown]
  - Paraesthesia [Unknown]
  - Mental disorder [Unknown]
  - Neurosyphilis [Unknown]
  - Muscle disorder [Unknown]
  - Pain in extremity [Recovered/Resolved]
  - Restlessness [Recovered/Resolved]
  - Hypoaesthesia [Unknown]
  - Insomnia [Not Recovered/Not Resolved]

NARRATIVE: CASE EVENT DATE: 201309
